FAERS Safety Report 5887974-7 (Version None)
Quarter: 2008Q3

REPORT INFORMATION
  Report Type: 
  Country: None (occurrence: None)
  Receive Date: 20080918
  Receipt Date: 20080915
  Transmission Date: 20090109
  Serious: Yes (Hospitalization)
  Sender: FDA-Public Use
  Company Number: B0537364A

PATIENT
  Age: 70 Year
  Sex: Female

DRUGS (11)
  1. LAMICTAL [Suspect]
     Route: 048
     Dates: start: 20080315, end: 20080623
  2. WELLBUTRIN [Concomitant]
     Indication: DEPRESSION
     Route: 065
     Dates: start: 20080517
  3. LITHIUM-ASPARTAT [Concomitant]
     Indication: DEPRESSION
     Route: 065
     Dates: start: 20080619
  4. SEROQUEL [Concomitant]
     Indication: DEPRESSION
     Dosage: 25MG AT NIGHT
     Route: 065
     Dates: start: 20080623
  5. EFFEXOR [Concomitant]
     Indication: DRUG USE FOR UNKNOWN INDICATION
     Route: 048
     Dates: start: 20040101, end: 20080515
  6. MADOPAR [Concomitant]
     Indication: PARKINSONISM
     Dosage: 750MG PER DAY
     Route: 048
  7. ATENOLOL [Concomitant]
     Indication: DRUG USE FOR UNKNOWN INDICATION
     Dosage: 100MG PER DAY
     Route: 048
     Dates: start: 20040101, end: 20080425
  8. EXFORGE [Concomitant]
     Indication: DRUG USE FOR UNKNOWN INDICATION
     Route: 048
  9. ATENOLOL [Concomitant]
     Dosage: 25MG PER DAY
     Route: 048
     Dates: start: 20080426
  10. MODURETIC 5-50 [Concomitant]
     Indication: DRUG USE FOR UNKNOWN INDICATION
     Route: 048
     Dates: start: 20080416, end: 20080425
  11. ASPIRIN [Concomitant]
     Indication: DRUG USE FOR UNKNOWN INDICATION
     Dosage: 100MG PER DAY
     Route: 048
     Dates: start: 20040101

REACTIONS (4)
  - ANOREXIA [None]
  - ILL-DEFINED DISORDER [None]
  - NAUSEA [None]
  - VOMITING [None]
